FAERS Safety Report 6601938-7 (Version None)
Quarter: 2010Q1

REPORT INFORMATION
  Report Type: 
  Country: None (occurrence: None)
  Receive Date: 20100225
  Receipt Date: 20100216
  Transmission Date: 20100710
  Serious: Yes (Other)
  Sender: FDA-Public Use
  Company Number: US-JNJFOC-20100201164

PATIENT
  Sex: Female

DRUGS (2)
  1. MOTRIN [Suspect]
     Indication: OROPHARYNGEAL PAIN
     Route: 048
  2. MOTRIN [Suspect]
     Indication: SINUS HEADACHE
     Route: 048

REACTIONS (4)
  - GASTROINTESTINAL DISORDER [None]
  - KIDNEY PERFORATION [None]
  - PRODUCT CONTAMINATION PHYSICAL [None]
  - PRODUCT QUALITY ISSUE [None]
